FAERS Safety Report 7844338-4 (Version None)
Quarter: 2011Q4

REPORT INFORMATION
  Report Type: 
  Country: None (occurrence: None)
  Receive Date: 20111025
  Receipt Date: 20111019
  Transmission Date: 20120403
  Serious: Yes (Death, Hospitalization)
  Sender: FDA-Public Use
  Company Number: US-CELGENEUS-163-20785-11083017

PATIENT
  Sex: Male

DRUGS (10)
  1. THALOMID [Suspect]
     Indication: MYELOFIBROSIS
     Dosage: 50 MILLIGRAM
     Route: 048
     Dates: start: 20110308, end: 20110330
  2. PHENERGAN HCL [Concomitant]
     Route: 065
  3. LASIX [Concomitant]
     Route: 065
  4. VALIUM [Concomitant]
     Route: 065
  5. ATIVAN [Concomitant]
     Route: 065
  6. POTASSIUM [Concomitant]
     Route: 065
  7. HYDREA [Concomitant]
     Route: 065
  8. SYNTHROID [Concomitant]
     Route: 065
  9. FLOMAX [Concomitant]
     Route: 065
  10. LORTAB [Concomitant]
     Route: 065

REACTIONS (4)
  - DIZZINESS [None]
  - MYELOFIBROSIS [None]
  - SUBDURAL HAEMATOMA [None]
  - FALL [None]
